FAERS Safety Report 9246583 (Version 2)
Quarter: 2013Q2

REPORT INFORMATION
  Report Type: Report from Study
  Country: US (occurrence: US)
  Receive Date: 20130422
  Receipt Date: 20130510
  Transmission Date: 20140414
  Serious: Yes (Other)
  Sender: FDA-Public Use
  Company Number: US-US-EMD SERONO, INC.-7206156

PATIENT
  Sex: Female
  Weight: 96 kg

DRUGS (1)
  1. REBIF [Suspect]
     Indication: PRODUCT USED FOR UNKNOWN INDICATION
     Route: 058
     Dates: start: 20080303, end: 201205

REACTIONS (3)
  - Glaucoma [Recovering/Resolving]
  - Nausea [Unknown]
  - Influenza like illness [Unknown]
